FAERS Safety Report 25653939 (Version 1)
Quarter: 2025Q3

REPORT INFORMATION
  Report Type: Spontaneous
  Country: EU (occurrence: EU)
  Receive Date: 20250807
  Receipt Date: 20250807
  Transmission Date: 20251021
  Serious: Yes (Other)
  Sender: AUROBINDO
  Company Number: EU-AFSSAPS-CN2025000826

PATIENT
  Age: 25 Year
  Sex: Male

DRUGS (5)
  1. LAMOTRIGINE [Suspect]
     Active Substance: LAMOTRIGINE
     Indication: Mental disorder
     Dosage: 25 MILLIGRAM, ONCE A DAY
     Route: 048
     Dates: start: 20250207, end: 20250221
  2. LAMOTRIGINE [Suspect]
     Active Substance: LAMOTRIGINE
     Dosage: 50 MILLIGRAM, ONCE A DAY
     Route: 048
     Dates: start: 20250221, end: 20250401
  3. LAMOTRIGINE [Suspect]
     Active Substance: LAMOTRIGINE
     Dosage: 200 MILLIGRAM, ONCE A DAY (AUGMENTATION PROGRESSIVE)
     Route: 048
     Dates: start: 20250401
  4. ARIPIPRAZOLE [Suspect]
     Active Substance: ARIPIPRAZOLE
     Indication: Mental disorder
     Dosage: 15 MILLIGRAM, ONCE A DAY
     Route: 048
     Dates: start: 202502, end: 20250306
  5. ARIPIPRAZOLE [Suspect]
     Active Substance: ARIPIPRAZOLE
     Dosage: 30 MILLIGRAM, ONCE A DAY
     Route: 048
     Dates: start: 20250306

REACTIONS (2)
  - Angina pectoris [Recovered/Resolved]
  - Palpitations [Recovered/Resolved]

NARRATIVE: CASE EVENT DATE: 20250301
